FAERS Safety Report 9355648 (Version 1)
Quarter: 2013Q2

REPORT INFORMATION
  Report Type: Spontaneous
  Country: FR (occurrence: FR)
  Receive Date: 20130619
  Receipt Date: 20130619
  Transmission Date: 20140414
  Serious: Yes (Life-Threatening, Hospitalization, Other)
  Sender: FDA-Public Use
  Company Number: FR-BRISTOL-MYERS SQUIBB COMPANY-19001205

PATIENT
  Age: 48 Year
  Sex: Female

DRUGS (11)
  1. COUMADINE [Suspect]
     Indication: PROPHYLAXIS
     Route: 048
  2. SPECIAFOLDINE [Concomitant]
  3. LAROXYL [Concomitant]
  4. METHOTREXATE [Concomitant]
  5. GABAPENTIN [Concomitant]
  6. PLAQUENIL [Concomitant]
  7. NOCTAMIDE [Concomitant]
  8. FORLAX [Concomitant]
  9. EUPANTOL [Concomitant]
  10. DIFFU-K [Concomitant]
  11. CORTANCYL [Concomitant]

REACTIONS (6)
  - Shock haemorrhagic [Recovered/Resolved]
  - Anaemia [Recovered/Resolved]
  - Melaena [Recovered/Resolved]
  - International normalised ratio increased [Recovered/Resolved]
  - Overdose [Recovered/Resolved]
  - Gastrointestinal motility disorder [Recovered/Resolved]
